FAERS Safety Report 11801847 (Version 1)
Quarter: 2015Q4

REPORT INFORMATION
  Report Type: Spontaneous
  Country: US (occurrence: None)
  Receive Date: 20151203
  Receipt Date: 20151203
  Transmission Date: 20160305
  Serious: Yes (Death, Hospitalization)
  Sender: FDA-Public Use
  Company Number: None

PATIENT
  Age: 63 Year
  Sex: Male
  Weight: 138.4 kg

DRUGS (4)
  1. ACYCLOVIR. [Concomitant]
     Active Substance: ACYCLOVIR
  2. VELCADE [Suspect]
     Active Substance: BORTEZOMIB
     Indication: HEPATOBILIARY DISEASE
     Dates: start: 20150910
  3. CIPRO [Concomitant]
     Active Substance: CIPROFLOXACIN HYDROCHLORIDE
  4. VELCADE [Suspect]
     Active Substance: BORTEZOMIB
     Indication: HEPATITIS ACUTE
     Dates: start: 20150910

REACTIONS (5)
  - Blood lactate dehydrogenase increased [None]
  - Generalised oedema [None]
  - Hepatic steatosis [None]
  - Liver function test abnormal [None]
  - Fatigue [None]

NARRATIVE: CASE EVENT DATE: 20151007
